FAERS Safety Report 4695835-4 (Version None)
Quarter: 2005Q2

REPORT INFORMATION
  Report Type: 
  Country: None (occurrence: None)
  Receive Date: 20050621
  Receipt Date: 20050614
  Transmission Date: 20051028
  Serious: Yes (Other)
  Sender: FDA-Public Use
  Company Number: PHBS2005BR08648

PATIENT
  Age: 48 Year
  Sex: Female
  Weight: 78 kg

DRUGS (9)
  1. PARLODEL [Suspect]
     Indication: PROLACTINOMA
     Dosage: 2.5 MG, QD
     Route: 048
     Dates: start: 20011201
  2. ETHINYLESTRADIOL/GESTODENE/ [Concomitant]
  3. DIGOXIN [Concomitant]
  4. DIHYDROERGOTAMINE MESYLATE [Concomitant]
  5. PARACETAMOL/ CAFFEINE [Concomitant]
  6. PREDNISONE TAB [Concomitant]
     Indication: HYPERTENSION
  7. PARLODEL [Suspect]
     Indication: PROLACTINOMA
     Dosage: 2.5 MG, QD
     Route: 048
     Dates: start: 19890101
  8. PARLODEL [Suspect]
     Dosage: 1.25 MG, QD
     Route: 048
     Dates: start: 20020201
  9. PARLODEL [Suspect]
     Dosage: 2.5 MG, QD
     Route: 048
     Dates: start: 20020401

REACTIONS (11)
  - ANAEMIA [None]
  - BLOOD GLUCOSE INCREASED [None]
  - BLOOD PROLACTIN INCREASED [None]
  - DIPLOPIA [None]
  - DIZZINESS [None]
  - HAEMATOCRIT DECREASED [None]
  - LIPOGRANULOMA [None]
  - METRORRHAGIA [None]
  - PALLOR [None]
  - TREATMENT NONCOMPLIANCE [None]
  - VAGINAL DISORDER [None]
